FAERS Safety Report 8028478-5 (Version None)
Quarter: 2012Q1

REPORT INFORMATION
  Report Type: 
  Country: None (occurrence: None)
  Receive Date: 20120106
  Receipt Date: 20120103
  Transmission Date: 20120608
  Serious: Yes (Death)
  Sender: FDA-Public Use
  Company Number: GB-ROCHE-GNE320438

PATIENT
  Sex: Female

DRUGS (11)
  1. DIGOXIN [Concomitant]
  2. BISOPROLOL [Concomitant]
  3. INSULIN [Concomitant]
     Dates: start: 20110216
  4. XALATAN [Concomitant]
  5. SPIRONOLACTONE [Concomitant]
  6. NITROGLYCERIN [Concomitant]
  7. LUCENTIS [Suspect]
     Indication: DETACHMENT OF RETINAL PIGMENT EPITHELIUM
     Dosage: UNK
     Route: 050
     Dates: start: 20080731
  8. ISMN [Concomitant]
  9. SIMVASTATIN [Concomitant]
  10. METFORMIN HCL [Concomitant]
     Dates: start: 20110214
  11. GLICLAZIDE [Concomitant]
     Dates: start: 20110214

REACTIONS (1)
  - RECTOSIGMOID CANCER [None]
